FAERS Safety Report 19075133 (Version 2)
Quarter: 2021Q2

REPORT INFORMATION
  Report Type: Spontaneous
  Country: JP (occurrence: JP)
  Receive Date: 20210330
  Receipt Date: 20210423
  Transmission Date: 20210717
  Serious: Yes (Hospitalization, Other)
  Sender: FDA-Public Use
  Company Number: JP-DSJP-DSJ-2021-104862

PATIENT
  Age: 8 Decade
  Sex: Male
  Weight: 49 kg

DRUGS (2)
  1. ENHERTU [Suspect]
     Active Substance: FAM-TRASTUZUMAB DERUXTECAN-NXKI
     Indication: GASTRIC CANCER
     Dosage: 320 MG, ONCE EVERY 3 WK, 2020/11/26, 12/21, 2021/1/13
     Route: 041
     Dates: start: 20201126, end: 20210113
  2. ENHERTU [Suspect]
     Active Substance: FAM-TRASTUZUMAB DERUXTECAN-NXKI
     Dosage: 264 MG, ONCE EVERY 3 WK, 2021/2/3
     Route: 041
     Dates: start: 20210203, end: 20210203

REACTIONS (7)
  - Diarrhoea [Recovered/Resolved]
  - Myelosuppression [Recovering/Resolving]
  - Malaise [Recovered/Resolved]
  - Anaemia [Recovering/Resolving]
  - Feeling abnormal [Recovered/Resolved]
  - Pyrexia [Recovered/Resolved]
  - Enteritis infectious [Recovered/Resolved]

NARRATIVE: CASE EVENT DATE: 20210120
